FAERS Safety Report 5034280-9 (Version None)
Quarter: 2006Q2

REPORT INFORMATION
  Report Type: 
  Country: None (occurrence: None)
  Receive Date: 20060626
  Receipt Date: 20050425
  Transmission Date: 20061013
  Serious: Yes (Life-Threatening, Hospitalization)
  Sender: FDA-Public Use
  Company Number: PHBS2005JP05989

PATIENT
  Age: 26 Year
  Sex: Female

DRUGS (6)
  1. SELBEX [Suspect]
     Indication: NASOPHARYNGITIS
     Dosage: 1 TAB/DAY
     Route: 048
     Dates: start: 20050418, end: 20050418
  2. VOLTAREN [Suspect]
     Indication: NASOPHARYNGITIS
     Dosage: 25 MG/DAY
     Route: 048
     Dates: start: 20050418, end: 20050418
  3. SEDES G [Suspect]
     Indication: NASOPHARYNGITIS
     Route: 048
     Dates: start: 20050415, end: 20050417
  4. ACETAMINOPHEN [Suspect]
     Indication: NASOPHARYNGITIS
     Dosage: 1 DF/DAY
     Route: 048
     Dates: start: 20050418, end: 20050418
  5. KAKKON-TO [Suspect]
     Indication: NASOPHARYNGITIS
     Dosage: 1 TAB/DAY
     Route: 048
     Dates: start: 20050418, end: 20050418
  6. ALLEGRA [Concomitant]
     Indication: SEASONAL ALLERGY
     Route: 048

REACTIONS (23)
  - ACUTE RESPIRATORY DISTRESS SYNDROME [None]
  - ALANINE AMINOTRANSFERASE INCREASED [None]
  - ASPARTATE AMINOTRANSFERASE INCREASED [None]
  - BLISTER [None]
  - BLOOD ALKALINE PHOSPHATASE INCREASED [None]
  - BLOOD AMYLASE INCREASED [None]
  - BLOOD BILIRUBIN INCREASED [None]
  - BLOOD LACTATE DEHYDROGENASE INCREASED [None]
  - CARDIAC DISORDER [None]
  - DYSPNOEA [None]
  - EJECTION FRACTION DECREASED [None]
  - EYE DISORDER [None]
  - GAMMA-GLUTAMYLTRANSFERASE INCREASED [None]
  - GENERALISED ERYTHEMA [None]
  - HEPATIC ENZYME INCREASED [None]
  - LIVER DISORDER [None]
  - LYMPHOCYTE STIMULATION TEST POSITIVE [None]
  - ORAL MUCOSAL DISORDER [None]
  - PULMONARY OEDEMA [None]
  - SKIN ULCER [None]
  - THROAT IRRITATION [None]
  - TOXIC EPIDERMAL NECROLYSIS [None]
  - VOMITING [None]
